FAERS Safety Report 15189591 (Version 2)
Quarter: 2018Q3

REPORT INFORMATION
  Report Type: Report from Study
  Country: GB (occurrence: GB)
  Receive Date: 20180724
  Receipt Date: 20180829
  Transmission Date: 20181010
  Serious: Yes (Death, Hospitalization, Other)
  Sender: FDA-Public Use
  Company Number: GB-JAZZ-2018-GB-011139

PATIENT
  Age: 2 Year
  Sex: Male

DRUGS (5)
  1. DEFITELIO [Suspect]
     Active Substance: DEFIBROTIDE SODIUM
     Indication: VENOOCCLUSIVE DISEASE
     Dosage: 6.25 MG/KG, QID
     Dates: start: 20180627, end: 20180710
  2. FUROSEMIDE. [Concomitant]
     Active Substance: FUROSEMIDE
     Indication: PRODUCT USED FOR UNKNOWN INDICATION
     Route: 042
     Dates: end: 20180710
  3. SALBUTAMOL [Concomitant]
     Active Substance: ALBUTEROL
     Indication: RESPIRATORY RATE INCREASED
     Dates: start: 20180709, end: 20180710
  4. AZITHROMYCIN ANHYDROUS. [Concomitant]
     Active Substance: AZITHROMYCIN ANHYDROUS
     Indication: CHEST X-RAY
     Dates: start: 20180708, end: 20180710
  5. MEROPENEM. [Concomitant]
     Active Substance: MEROPENEM
     Indication: INFECTION
     Route: 042
     Dates: start: 20180709, end: 20180710

REACTIONS (4)
  - Pulmonary veno-occlusive disease [Fatal]
  - Pulmonary haemorrhage [Fatal]
  - Thrombocytopenia [Unknown]
  - Cerebrovascular disorder [Not Recovered/Not Resolved]

NARRATIVE: CASE EVENT DATE: 201806
